FAERS Safety Report 12861659 (Version 2)
Quarter: 2016Q4

REPORT INFORMATION
  Report Type: Spontaneous
  Country: US (occurrence: US)
  Receive Date: 20161019
  Receipt Date: 20161205
  Transmission Date: 20170207
  Serious: No
  Sender: FDA-Public Use
  Company Number: US-PFIZER INC-2016484980

PATIENT
  Sex: Female

DRUGS (1)
  1. SOLU-MEDROL [Suspect]
     Active Substance: METHYLPREDNISOLONE SODIUM SUCCINATE
     Dosage: 40MG/ML, 1ML ACTIVIAL.

REACTIONS (2)
  - Limb injury [Recovering/Resolving]
  - Occupational exposure to product [Unknown]

NARRATIVE: CASE EVENT DATE: 20161015
